FAERS Safety Report 19746378 (Version 4)
Quarter: 2022Q2

REPORT INFORMATION
  Report Type: Report from Study
  Country: ES (occurrence: ES)
  Receive Date: 20210826
  Receipt Date: 20220620
  Transmission Date: 20220721
  Serious: Yes (Life-Threatening, Hospitalization, Other)
  Sender: FDA-Public Use
  Company Number: ES-BRISTOL-MYERS SQUIBB COMPANY-BMS-2021-055459

PATIENT
  Age: 60 Year
  Sex: Male
  Weight: 85 kg

DRUGS (69)
  1. IPILIMUMAB [Suspect]
     Active Substance: IPILIMUMAB
     Indication: Non-small cell lung cancer
     Route: 042
     Dates: start: 20210409, end: 20210409
  2. CARBOPLATIN [Suspect]
     Active Substance: CARBOPLATIN
     Indication: Non-small cell lung cancer
     Route: 065
     Dates: start: 20201218, end: 20201218
  3. CARBOPLATIN [Suspect]
     Active Substance: CARBOPLATIN
     Route: 065
     Dates: start: 20210201, end: 20210201
  4. PACLITAXEL [Suspect]
     Active Substance: PACLITAXEL
     Indication: Non-small cell lung cancer
     Route: 065
     Dates: start: 20201218, end: 20201218
  5. PACLITAXEL [Suspect]
     Active Substance: PACLITAXEL
     Route: 065
     Dates: start: 20210208, end: 20210208
  6. MORPHINE SULFATE [Concomitant]
     Active Substance: MORPHINE SULFATE
     Indication: Gastritis
     Dosage: BD; TWICE PER DAY?ONGOING
     Route: 048
     Dates: start: 20210531
  7. MORPHINE SULFATE [Concomitant]
     Active Substance: MORPHINE SULFATE
     Indication: Pain
     Dosage: BD; TWICE PER DAY?ONGOING
     Route: 048
     Dates: start: 20210531
  8. MORPHINE SULFATE [Concomitant]
     Active Substance: MORPHINE SULFATE
     Dosage: BD; TWICE PER DAY?ONGOING
     Route: 048
     Dates: start: 20210216
  9. ENALAPRIL [Concomitant]
     Active Substance: ENALAPRIL
     Indication: Prophylaxis
     Dosage: DAILY; PER DAY?ONGOING
     Route: 048
     Dates: start: 20210111
  10. ENALAPRIL [Concomitant]
     Active Substance: ENALAPRIL
     Dosage: DAILY; PER DAY?ONGOING
     Route: 048
     Dates: start: 20210212
  11. ENALAPRIL [Concomitant]
     Active Substance: ENALAPRIL
     Dosage: DAILY; PER DAY?ONGOING
     Route: 048
     Dates: start: 20210316
  12. PANTOPRAZOLE [Concomitant]
     Active Substance: PANTOPRAZOLE
     Indication: Pain
     Dosage: 1 DOSAGE FORM= 20 UNITS NOS?BD; TWICE PER DAY?ONGOING
     Route: 050
     Dates: start: 20210214
  13. PANTOPRAZOLE [Concomitant]
     Active Substance: PANTOPRAZOLE
     Indication: Gastritis
     Dosage: BD; TWICE PER DAY?ONGOING
     Route: 042
     Dates: start: 20210316
  14. PANTOPRAZOLE [Concomitant]
     Active Substance: PANTOPRAZOLE
     Dosage: CONTINUOUS?ONGOING
     Route: 042
     Dates: start: 20210316
  15. PANTOPRAZOLE [Concomitant]
     Active Substance: PANTOPRAZOLE
     Dosage: CONTINUOUS?ONGOING
     Route: 042
     Dates: start: 20210521
  16. PANTOPRAZOLE [Concomitant]
     Active Substance: PANTOPRAZOLE
     Dosage: BD; TWICE PER DAY?ONGOING
     Route: 048
     Dates: start: 20210531
  17. ACETAMINOPHEN [Concomitant]
     Active Substance: ACETAMINOPHEN
     Indication: Pain
     Dosage: 3 TIMES PER DAY?ONGOING
     Route: 042
     Dates: start: 20210316
  18. ACETAMINOPHEN [Concomitant]
     Active Substance: ACETAMINOPHEN
     Indication: Gastritis
     Dosage: AS NEEDED?ONGOING
     Route: 042
     Dates: start: 20210509
  19. ACETAMINOPHEN [Concomitant]
     Active Substance: ACETAMINOPHEN
     Dosage: 3 TIMES PER DAY?ONGOING
     Route: 048
     Dates: start: 20210531
  20. RABEPRAZOL [RABEPRAZOLE SODIUM] [Concomitant]
     Indication: Prophylaxis
     Dosage: BD; TWICE PER DAY?ONGOING
     Route: 048
     Dates: start: 20210111
  21. ALMAGATE [Concomitant]
     Active Substance: ALMAGATE
     Indication: Gastritis
     Dosage: DAILY; PER DAY?ONGOING
     Route: 048
     Dates: start: 20210211
  22. ALMAGATE [Concomitant]
     Active Substance: ALMAGATE
     Dosage: AS NEEDED?ONGOING
     Route: 048
     Dates: start: 20210316
  23. MORPHINE [Concomitant]
     Active Substance: MORPHINE
     Indication: Pain
     Dosage: 1 DOSAGE FORM= 1UNIT NOS?EVERY 4 HOURS?ONGOING
     Route: 058
     Dates: start: 20210211
  24. MORPHINE [Concomitant]
     Active Substance: MORPHINE
     Indication: Gastritis
     Dosage: AS NEEDED?ONGOING
     Route: 058
     Dates: start: 20210316
  25. MORPHINE [Concomitant]
     Active Substance: MORPHINE
     Dosage: AS NEEDED
     Route: 058
     Dates: start: 20210513, end: 20210525
  26. MORPHINE [Concomitant]
     Active Substance: MORPHINE
     Dosage: EVERY 4 HOURS
     Route: 058
     Dates: start: 20210521, end: 20210525
  27. MORPHINE [Concomitant]
     Active Substance: MORPHINE
     Dosage: EVERY 4 HOURS
     Route: 058
     Dates: start: 20210525, end: 20210529
  28. MORPHINE [Concomitant]
     Active Substance: MORPHINE
     Dosage: AS NEEDED?ONGOING
     Route: 058
     Dates: start: 20210525
  29. MORPHINE [Concomitant]
     Active Substance: MORPHINE
     Dosage: EVERY 4 HOURS?ONGOING
     Route: 058
     Dates: start: 20210529
  30. CASENLAX [Concomitant]
     Indication: Gastritis
     Dosage: DAILY; PER DAY?ONGOING
     Route: 048
     Dates: start: 20210211
  31. PUNTUAL [Concomitant]
     Indication: Gastritis
     Dosage: 1 DF= 12UNITS NOS?DAILY; PER DAY?ONGOING
     Route: 048
     Dates: start: 20210211
  32. ERYTHROMYCIN [Concomitant]
     Active Substance: ERYTHROMYCIN
     Indication: Gastritis
     Dosage: 1DF= 10UNITS NOS?EVERY 8 HOURS?ONGOING
     Route: 048
     Dates: start: 20210212
  33. MENAVEN [Concomitant]
     Indication: Phlebitis
     Dosage: 1DF=1000 UNITS NOS?3 TIMES PER DAY?ONGOING
     Route: 061
     Dates: start: 20210201
  34. IBUPROFEN [Concomitant]
     Active Substance: IBUPROFEN
     Indication: Gastritis
     Dosage: EVERY 8 HOURS?ONGOING
     Route: 050
     Dates: start: 20210215
  35. GELCLAIR [HYALURONATE SODIUM;POVIDONE] [Concomitant]
     Indication: Gastritis
     Dosage: 1DF=15 UNITS NOS?EVERY 8 HOURS?ONGOING
     Route: 048
     Dates: start: 20210215
  36. NISTATIN [Concomitant]
     Active Substance: NYSTATIN
     Indication: Gastritis
     Dosage: 1DF=10 UNIT NOS?EVERY 8 HOURS?ONGOING
     Route: 048
     Dates: start: 20210217
  37. METAMIZOL [Concomitant]
     Active Substance: METAMIZOLE SODIUM
     Indication: Pain
     Dosage: 1DF=500 UNITS NOS?EVERY 8 HOURS?ONGOING
     Route: 048
     Dates: start: 20210218
  38. METAMIZOL [Concomitant]
     Active Substance: METAMIZOLE SODIUM
     Indication: Gastritis
     Dosage: AS NEEDED?ONGOING
     Route: 042
     Dates: start: 20210316
  39. METAMIZOL [Concomitant]
     Active Substance: METAMIZOLE SODIUM
     Dosage: EVERY 6 HOURS?ONGOING
     Route: 048
     Dates: start: 20210531
  40. ORAMORPH SR SUSTAINED RELEASE [Concomitant]
     Active Substance: MORPHINE SULFATE
     Indication: Product used for unknown indication
     Dosage: 1DF=2 UNITS NOS?AS NEEDED?ONGOING
     Route: 048
     Dates: start: 20210217
  41. BEMIPARIN [Concomitant]
     Active Substance: BEMIPARIN
     Indication: Gastritis
     Dosage: 1DF= 3500 UNITS NOS?DAILY; PER DAY?ONGOING
     Route: 058
     Dates: start: 20210316
  42. ONDANSETRON [Concomitant]
     Active Substance: ONDANSETRON
     Indication: Prophylaxis
     Dosage: BD; TWICE PER DAY?ONGOING
     Route: 042
     Dates: start: 20210316
  43. ONDANSETRON [Concomitant]
     Active Substance: ONDANSETRON
     Dosage: BD; TWICE PER DAY?ONGOING
     Route: 048
     Dates: start: 20201218
  44. METOCLOPRAMIDE [Concomitant]
     Active Substance: METOCLOPRAMIDE
     Indication: Gastritis
     Dosage: AS NEEDED?ONGOING
     Route: 042
     Dates: start: 20210316
  45. LORAZEPAM [Concomitant]
     Active Substance: LORAZEPAM
     Indication: Pain
     Dosage: DAILY; PER DAY?ONGOING
     Route: 048
     Dates: start: 20210507
  46. LORAZEPAM [Concomitant]
     Active Substance: LORAZEPAM
     Dosage: BD; TWICE PER DAY?ONGOING
     Route: 048
     Dates: start: 20210521
  47. DIAZEPAM [Concomitant]
     Active Substance: DIAZEPAM
     Indication: Pain
     Dosage: AS NEEDED?ONGOING
     Route: 042
     Dates: start: 20210508
  48. DEXKETOPROFEN [Concomitant]
     Active Substance: DEXKETOPROFEN
     Indication: Pain
     Dosage: 3 TIMES PER DAY
     Route: 042
     Dates: start: 20210508, end: 20210526
  49. ZIVEREL [Concomitant]
     Indication: Pain
     Dosage: 1 DOSAGE FORM= 1 UNIT NOS?BD; TWICE PER DAY?ONGOING
     Route: 048
     Dates: start: 20210508
  50. FUROSEMIDE [Concomitant]
     Active Substance: FUROSEMIDE
     Indication: Pain
     Dosage: DAILY; PER DAY?ONGOING
     Route: 042
     Dates: start: 20210514
  51. MIRTAZAPINE [Concomitant]
     Active Substance: MIRTAZAPINE
     Indication: Pain
     Dosage: DAILY; PER DAY?ONGOING
     Route: 060
     Dates: start: 20210514
  52. HIBOR [Concomitant]
     Indication: Pain
     Dosage: 1DF= 3500 UNITS NOS?DAILY; PER DAY
     Route: 058
     Dates: start: 20210517, end: 20210527
  53. HIBOR [Concomitant]
     Dosage: 1DF= 7500 UNITS NOS?DAILY; PER DAY?ONGOING
     Route: 058
     Dates: start: 20210528
  54. TIAMINA [THIAMINE] [Concomitant]
     Indication: Pain
     Dosage: DAILY; PER DAY?ONGOING
     Route: 042
     Dates: start: 20210518
  55. TRANEXAMIC ACID [Concomitant]
     Active Substance: TRANEXAMIC ACID
     Indication: Anaemia
     Dosage: 3 TIMES PER DAY
     Route: 042
     Dates: start: 20210520, end: 20210527
  56. BUTYLSCOPOLAMINE [Concomitant]
     Active Substance: BUTYLSCOPOLAMINE
     Indication: Pain
     Dosage: EVERY 4 HOURS
     Route: 042
     Dates: start: 20210520, end: 20210530
  57. BUTYLSCOPOLAMINE [Concomitant]
     Active Substance: BUTYLSCOPOLAMINE
     Dosage: EVERY 6 HOURS
     Route: 042
     Dates: start: 20210526, end: 20210528
  58. BUTYLSCOPOLAMINE [Concomitant]
     Active Substance: BUTYLSCOPOLAMINE
     Dosage: EVERY 6 HOURS?ONGOING
     Route: 048
     Dates: start: 20210531
  59. BUTYLSCOPOLAMINE [Concomitant]
     Active Substance: BUTYLSCOPOLAMINE
     Dosage: 1 DOSAGE FORM= 1UNIT NOS?EVERY 6 HOURS?ONGOING
     Route: 042
     Dates: start: 20210531
  60. FENTANYL [Concomitant]
     Active Substance: FENTANYL
     Indication: Pain
     Dosage: AS NEEDED?ONGOING
     Route: 060
     Dates: start: 20210520
  61. LORAZEPAM [Concomitant]
     Active Substance: LORAZEPAM
     Indication: Prophylaxis
     Dosage: AS NEEDED?ONGOING
     Route: 048
     Dates: start: 20210111
  62. METHYLPREDNISOLONE [Concomitant]
     Active Substance: METHYLPREDNISOLONE
     Indication: Pain
     Dosage: DAILY; PER DAY
     Route: 042
     Dates: start: 20210526, end: 20210528
  63. METHYLPREDNISOLONE [Concomitant]
     Active Substance: METHYLPREDNISOLONE
     Dosage: ONCE
     Route: 042
     Dates: start: 20210529, end: 20210529
  64. METHYLPREDNISOLONE [Concomitant]
     Active Substance: METHYLPREDNISOLONE
     Dosage: DAILY; PER DAY?ONGOING
     Route: 042
     Dates: start: 20210530
  65. METHYLPREDNISOLONE [Concomitant]
     Active Substance: METHYLPREDNISOLONE
     Dosage: DAILY; PER DAY
     Route: 042
     Dates: start: 20210530, end: 20210607
  66. SODIUM BICARBONATE [Concomitant]
     Active Substance: SODIUM BICARBONATE
     Indication: Product used for unknown indication
     Dosage: 1 DOSAGE FORM= 200 UNITS NOS?DAILY; PER DAY?ONGOING
     Route: 048
     Dates: start: 20210317
  67. MORPHINE [Concomitant]
     Active Substance: MORPHINE
     Indication: Upper gastrointestinal haemorrhage
     Dosage: EVERY 4 HOURS
     Route: 058
     Dates: start: 20210607, end: 20210610
  68. MORPHINE [Concomitant]
     Active Substance: MORPHINE
     Dosage: AS NEEDED
     Route: 058
     Dates: start: 20210607, end: 20210616
  69. GLYCERIN [Concomitant]
     Active Substance: GLYCERIN
     Dosage: CASEN ENEMA?1 DF= 1 UNIT NOS?AS NEEDED?ONGOING
     Route: 054
     Dates: start: 20210523

REACTIONS (2)
  - Upper gastrointestinal haemorrhage [Not Recovered/Not Resolved]
  - Arterial thrombosis [Recovered/Resolved]

NARRATIVE: CASE EVENT DATE: 20210607
